FAERS Safety Report 5705375-9 (Version None)
Quarter: 2008Q2

REPORT INFORMATION
  Report Type: 
  Country: None (occurrence: None)
  Receive Date: 20080415
  Receipt Date: 20080404
  Transmission Date: 20081010
  Serious: Yes (Other)
  Sender: FDA-Public Use
  Company Number: AU-JNJFOC-20080400745

PATIENT
  Sex: Female

DRUGS (3)
  1. RISPERDAL [Suspect]
     Indication: PSYCHOTIC DISORDER
  2. OLANZAPINE [Concomitant]
  3. OLANZAPINE [Concomitant]

REACTIONS (2)
  - BLOOD PROLACTIN INCREASED [None]
  - NEUTROPENIA [None]
